FAERS Safety Report 13603397 (Version 1)
Quarter: 2017Q2

REPORT INFORMATION
  Report Type: Spontaneous
  Country: US (occurrence: US)
  Receive Date: 20170601
  Receipt Date: 20170601
  Transmission Date: 20170912
  Serious: No
  Sender: FDA-Public Use
  Company Number: US-OTSUKA-2016_014756

PATIENT
  Age: 86 Year
  Sex: Female

DRUGS (2)
  1. SAMSCA [Suspect]
     Indication: HYPONATRAEMIA
  2. SAMSCA [Suspect]
     Indication: HYPOOSMOLAR STATE
     Dosage: 7.5 MG (1/2 TABLET OF 15MG), QW
     Route: 048
     Dates: start: 20160301

REACTIONS (5)
  - Underdose [Unknown]
  - Incorrect drug administration duration [Unknown]
  - Inappropriate schedule of drug administration [Unknown]
  - No adverse event [Unknown]
  - Wrong technique in product usage process [Unknown]

NARRATIVE: CASE EVENT DATE: 20160301
